FAERS Safety Report 9841721 (Version 2)
Quarter: 2014Q1

REPORT INFORMATION
  Report Type: Report from Study
  Country: DE (occurrence: DE)
  Receive Date: 20140124
  Receipt Date: 20140124
  Transmission Date: 20141002
  Serious: Yes (Life-Threatening, Hospitalization, Other)
  Sender: FDA-Public Use
  Company Number: DE-ABBVIE-12P-062-0983551-00

PATIENT
  Age: 43 Year
  Sex: Female

DRUGS (8)
  1. HUMIRA [Suspect]
     Indication: CROHN^S DISEASE
     Route: 058
     Dates: start: 20120522, end: 20120904
  2. HUMIRA [Suspect]
     Route: 058
     Dates: start: 2012, end: 201301
  3. HUMIRA [Suspect]
     Route: 058
     Dates: start: 201301, end: 20130806
  4. HUMIRA [Suspect]
     Route: 058
     Dates: start: 20131227
  5. CORTISONE [Concomitant]
     Indication: PRODUCT USED FOR UNKNOWN INDICATION
     Dates: end: 2013
  6. CORTISONE [Concomitant]
     Dates: start: 2013
  7. PANTOPRAZOLE [Concomitant]
     Indication: PRODUCT USED FOR UNKNOWN INDICATION
  8. RAMIPRIL [Concomitant]
     Indication: HYPERTENSION

REACTIONS (8)
  - Wound [Not Recovered/Not Resolved]
  - Abdominal pain [Recovering/Resolving]
  - Salpingitis [Recovering/Resolving]
  - Mesenteric vascular insufficiency [Recovering/Resolving]
  - Impaired healing [Recovering/Resolving]
  - Purulent discharge [Recovering/Resolving]
  - Diarrhoea [Recovering/Resolving]
  - Abdominal infection [Not Recovered/Not Resolved]
